FAERS Safety Report 4810331-9 (Version None)
Quarter: 2005Q4

REPORT INFORMATION
  Report Type: 
  Country: None (occurrence: None)
  Receive Date: 20051026
  Receipt Date: 20051018
  Transmission Date: 20060501
  Serious: Yes (Hospitalization)
  Sender: FDA-Public Use
  Company Number: US-JNJFOC-20051004394

PATIENT
  Sex: Male

DRUGS (6)
  1. RISPERDAL [Suspect]
     Route: 048
  2. RISPERDAL [Suspect]
     Indication: DEMENTIA
     Route: 048
  3. NAMENDA [Suspect]
     Indication: DEMENTIA
     Route: 048
  4. FLOMAX [Concomitant]
  5. ASPIRIN [Concomitant]
  6. ALPHAGAN [Concomitant]

REACTIONS (9)
  - ATRIOVENTRICULAR BLOCK FIRST DEGREE [None]
  - BUNDLE BRANCH BLOCK LEFT [None]
  - CHOLELITHIASIS [None]
  - GAIT DISTURBANCE [None]
  - HEPATIC ENZYME INCREASED [None]
  - PARKINSONISM [None]
  - SOMNOLENCE [None]
  - TREMOR [None]
  - URINARY TRACT INFECTION [None]
